FAERS Safety Report 10800108 (Version 1)
Quarter: 2015Q1

REPORT INFORMATION
  Report Type: Report from Study
  Country: US (occurrence: US)
  Receive Date: 20150216
  Receipt Date: 20150216
  Transmission Date: 20150721
  Serious: No
  Sender: FDA-Public Use
  Company Number: US-ABBVIE-14K-163-1244644-00

PATIENT
  Age: 36 Year
  Sex: Male

DRUGS (6)
  1. UNKNOWN MEDICATIONS [Concomitant]
     Active Substance: UNSPECIFIED INGREDIENT
     Indication: PRODUCT USED FOR UNKNOWN INDICATION
  2. HUMIRA [Suspect]
     Active Substance: ADALIMUMAB
     Indication: CROHN^S DISEASE
     Dates: start: 20140516, end: 20140516
  3. HUMIRA [Suspect]
     Active Substance: ADALIMUMAB
     Indication: ANKYLOSING SPONDYLITIS
     Dates: start: 20140530, end: 20140530
  4. HUMIRA [Suspect]
     Active Substance: ADALIMUMAB
  5. PREDNISONE. [Concomitant]
     Active Substance: PREDNISONE
     Indication: CROHN^S DISEASE
     Dosage: TWO TABLETS IN MORNING AND TWO TABLETS IN EVENING
  6. DDAVP [Concomitant]
     Active Substance: DESMOPRESSIN ACETATE
     Indication: HAEMORRHAGE
     Route: 042

REACTIONS (2)
  - Injection site rash [Not Recovered/Not Resolved]
  - Injection site rash [Not Recovered/Not Resolved]

NARRATIVE: CASE EVENT DATE: 20140516
